FAERS Safety Report 15867351 (Version 2)
Quarter: 2019Q1

REPORT INFORMATION
  Report Type: Spontaneous
  Country: DE (occurrence: DE)
  Receive Date: 20190125
  Receipt Date: 20190201
  Transmission Date: 20190417
  Serious: Yes (Other)
  Sender: FDA-Public Use
  Company Number: DE-JNJFOC-20190126857

PATIENT
  Age: 23 Year
  Sex: Male
  Weight: 80 kg

DRUGS (2)
  1. XEPLION [Suspect]
     Active Substance: PALIPERIDONE PALMITATE
     Indication: PSYCHOTIC DISORDER
     Route: 030
  2. XEPLION [Suspect]
     Active Substance: PALIPERIDONE PALMITATE
     Indication: PSYCHOTIC DISORDER
     Route: 030
     Dates: start: 20180201

REACTIONS (3)
  - Cardiac flutter [Unknown]
  - Appetite disorder [Unknown]
  - Sleep disorder [Unknown]

NARRATIVE: CASE EVENT DATE: 20180202
